FAERS Safety Report 5013458-4 (Version None)
Quarter: 2006Q2

REPORT INFORMATION
  Report Type: 
  Country: None (occurrence: None)
  Receive Date: 20060525
  Receipt Date: 20060525
  Transmission Date: 20061013
  Serious: No
  Sender: FDA-Public Use
  Company Number: None

PATIENT
  Sex: Female
  Weight: 4.037 kg

DRUGS (2)
  1. TERBUTALINE [Suspect]
     Indication: PREMATURE LABOUR
     Dosage: 4 TIMES DAILY PO
     Route: 048
     Dates: start: 19851014, end: 19860301
  2. . [Concomitant]

REACTIONS (16)
  - ABNORMAL BEHAVIOUR [None]
  - AGGRESSION [None]
  - ASPERGER'S DISORDER [None]
  - COGNITIVE DISORDER [None]
  - DIABETES MELLITUS [None]
  - DRUG EXPOSURE DURING PREGNANCY [None]
  - GROWTH ACCELERATED [None]
  - INTELLIGENCE TEST ABNORMAL [None]
  - LEARNING DISABILITY [None]
  - MEMORY IMPAIRMENT [None]
  - MOOD SWINGS [None]
  - MOTOR DYSFUNCTION [None]
  - NERVOUS SYSTEM DISORDER [None]
  - NERVOUSNESS [None]
  - SOCIAL PROBLEM [None]
  - VISUAL DISTURBANCE [None]
